FAERS Safety Report 15429981 (Version 1)
Quarter: 2018Q3

REPORT INFORMATION
  Report Type: Spontaneous
  Country: CZ (occurrence: CZ)
  Receive Date: 20180926
  Receipt Date: 20180926
  Transmission Date: 20181010
  Serious: Yes (Hospitalization, Disabling)
  Sender: FDA-Public Use
  Company Number: CZ-PFIZER INC-2018383865

PATIENT
  Age: 44 Year
  Sex: Male
  Weight: 87 kg

DRUGS (3)
  1. CYTARABINE. [Suspect]
     Active Substance: CYTARABINE
     Dosage: UNK
     Route: 065
  2. SULFAMETHOXAZOLE AND TRIMETHOPRIM [Concomitant]
     Active Substance: SULFAMETHOXAZOLE\TRIMETHOPRIM
     Indication: INFECTION PROPHYLAXIS
     Dosage: 1 DF, QD
     Route: 048
     Dates: start: 20180626
  3. FLUCONAZOLUM [FLUCONAZOLE] [Concomitant]
     Indication: INFECTION PROPHYLAXIS
     Dosage: 200 MG, BID
     Route: 048
     Dates: start: 20180807

REACTIONS (5)
  - Pyrexia [Unknown]
  - Neutrophil count decreased [Unknown]
  - Dyspnoea [Unknown]
  - Septic shock [Recovered/Resolved]
  - C-reactive protein increased [Unknown]

NARRATIVE: CASE EVENT DATE: 20180817
